FAERS Safety Report 8832119 (Version 1)
Quarter: 2012Q4

REPORT INFORMATION
  Report Type: Report from Study
  Country: GB (occurrence: GB)
  Receive Date: 20121009
  Receipt Date: 20121009
  Transmission Date: 20130627
  Serious: Yes (Other)
  Sender: FDA-Public Use
  Company Number: GB-ROCHE-1140696

PATIENT
  Sex: Female
  Weight: 57 kg

DRUGS (2)
  1. MABTHERA [Suspect]
     Indication: RHEUMATOID ARTHRITIS
     Route: 065
     Dates: start: 20110106
  2. HYDROXYCHLOROQUINE [Concomitant]

REACTIONS (2)
  - Spinal fracture [Unknown]
  - Spinal osteoarthritis [Unknown]
